FAERS Safety Report 6971597-2 (Version None)
Quarter: 2010Q3

REPORT INFORMATION
  Report Type: 
  Country: None (occurrence: None)
  Receive Date: 20100908
  Receipt Date: 20100906
  Transmission Date: 20110219
  Serious: Yes (Death)
  Sender: FDA-Public Use
  Company Number: AT-GENZYME-MOZO-1000388

PATIENT
  Sex: Male

DRUGS (3)
  1. MOZOBIL [Suspect]
     Indication: HAEMATOPOIETIC STEM CELL MOBILISATION
     Route: 058
  2. MOZOBIL [Suspect]
     Indication: TESTIS CANCER
  3. NEUPOGEN [Concomitant]
     Indication: HAEMATOPOIETIC STEM CELL MOBILISATION

REACTIONS (3)
  - MUCOSAL INFLAMMATION [None]
  - PNEUMONIA [None]
  - PYREXIA [None]
